FAERS Safety Report 13103133 (Version 2)
Quarter: 2017Q1

REPORT INFORMATION
  Report Type: Spontaneous
  Country: MX (occurrence: MX)
  Receive Date: 20170110
  Receipt Date: 20170125
  Transmission Date: 20170428
  Serious: Yes (Death, Hospitalization)
  Sender: FDA-Public Use
  Company Number: MX-BIOMARINAP-MX-2017-112345

PATIENT
  Age: 4 Year
  Sex: Male
  Weight: 13.5 kg

DRUGS (1)
  1. ALDURAZYME [Suspect]
     Active Substance: LARONIDASE
     Indication: MUCOPOLYSACCHARIDOSIS I
     Dosage: UNK, QW
     Route: 041
     Dates: start: 201308, end: 20161228

REACTIONS (5)
  - Aspiration bronchial [Fatal]
  - Cyanosis [Fatal]
  - Hypoxia [Fatal]
  - Hypotonia [Fatal]
  - Productive cough [Recovered/Resolved]

NARRATIVE: CASE EVENT DATE: 20170101
